FAERS Safety Report 7477612-4 (Version None)
Quarter: 2011Q2

REPORT INFORMATION
  Report Type: 
  Country: None (occurrence: None)
  Receive Date: 20110513
  Receipt Date: 20110503
  Transmission Date: 20111010
  Serious: No
  Sender: FDA-Public Use
  Company Number: US-JNJFOC-20110406687

PATIENT
  Sex: Female
  Weight: 65.77 kg

DRUGS (9)
  1. FENTANYL-100 [Suspect]
     Route: 062
  2. AMITRIPTYLINE HCL [Concomitant]
     Indication: PAIN
     Route: 048
  3. BYSTOLIC [Concomitant]
     Indication: ARRHYTHMIA
     Route: 048
  4. FENTANYL-100 [Suspect]
     Indication: PAIN
     Dosage: 2 OF 25 UG/HR PATCH ALTERNATING 1 PATCH EVERY 24 HOURS
     Route: 062
  5. FENTANYL-100 [Suspect]
     Route: 062
  6. FENTANYL-100 [Suspect]
     Route: 062
  7. SYNTHROID [Concomitant]
     Indication: THYROID DISORDER
     Route: 048
  8. FENTANYL-100 [Suspect]
     Route: 062
  9. FENTANYL-100 [Suspect]
     Route: 062

REACTIONS (8)
  - WRONG TECHNIQUE IN DRUG USAGE PROCESS [None]
  - INADEQUATE ANALGESIA [None]
  - VOMITING [None]
  - PRODUCT ADHESION ISSUE [None]
  - COLD SWEAT [None]
  - NAUSEA [None]
  - PRODUCT OUTER PACKAGING ISSUE [None]
  - HYPERHIDROSIS [None]
